FAERS Safety Report 8765341 (Version 1)
Quarter: 2012Q4

REPORT INFORMATION
  Report Type: 
  Country: JP (occurrence: JP)
  Receive Date: 20120830
  Receipt Date: 20120830
  Transmission Date: 20130627
  Serious: Yes (Other)
  Sender: FDA-Public Use
  Company Number: JP-ASTELLAS-2012JP007997

PATIENT
  Age: 14 Year
  Sex: Male
  Weight: 52.2 kg

DRUGS (9)
  1. FUNGUARD [Suspect]
     Indication: ASPERGILLOSIS
     Dosage: 150 mg, UID/QD
     Route: 065
  2. FUNGUARD [Suspect]
     Dosage: 300 mg, UID/QD
     Route: 065
  3. AZATHIOPRINE [Concomitant]
     Indication: HAEMOSIDEROSIS
     Route: 065
  4. CORTICOSTEROID NOS [Concomitant]
     Indication: HAEMOSIDEROSIS
     Route: 065
  5. VORICONAZOLE [Concomitant]
     Indication: ASPERGILLOSIS
     Dosage: 330 mg, bid
     Route: 065
  6. VORICONAZOLE [Concomitant]
     Dosage: 200 mg, bid
     Route: 065
  7. VORICONAZOLE [Concomitant]
     Dosage: 400 mg, bid
     Route: 065
  8. VORICONAZOLE [Concomitant]
     Dosage: 300 mg, bid
     Route: 065
  9. VORICONAZOLE [Concomitant]
     Dosage: 200 mg, tid
     Route: 065

REACTIONS (2)
  - Drug ineffective [Unknown]
  - Aspergillosis [Unknown]
